FAERS Safety Report 12241329 (Version 1)
Quarter: 2016Q2

REPORT INFORMATION
  Report Type: Spontaneous
  Country: IT (occurrence: IT)
  Receive Date: 20160406
  Receipt Date: 20160406
  Transmission Date: 20160815
  Serious: Yes (Other)
  Sender: FDA-Public Use
  Company Number: IT-TEVA-648298ACC

PATIENT
  Age: 45 Year
  Sex: Male

DRUGS (4)
  1. NATULAN - 50 MG CAPSULE RIGIDE [Suspect]
     Active Substance: PROCARBAZINE HYDROCHLORIDE
     Indication: GLIOBLASTOMA
     Dosage: 150 MILLIGRAM DAILY;
     Route: 048
     Dates: start: 20160119, end: 20160201
  2. VINCRISTINA TEVA - TEVA PHARMA B.V. [Suspect]
     Active Substance: VINCRISTINE
     Indication: GLIOBLASTOMA
     Dosage: 1.5 MG TOTAL
     Route: 041
     Dates: start: 20160112, end: 20160112
  3. SOLDESAM [Concomitant]
     Active Substance: DEXAMETHASONE
     Indication: PRODUCT USED FOR UNKNOWN INDICATION
  4. LOMUSTINE. [Suspect]
     Active Substance: LOMUSTINE
     Indication: GLIOBLASTOMA
     Dosage: 200 MG TOTAL
     Route: 048
     Dates: start: 20160112, end: 20160112

REACTIONS (3)
  - Leukopenia [Recovered/Resolved]
  - Hypertransaminasaemia [Recovered/Resolved]
  - Thrombocytopenia [Recovered/Resolved]

NARRATIVE: CASE EVENT DATE: 20160202
